FAERS Safety Report 21518031 (Version 1)
Quarter: 2022Q4

REPORT INFORMATION
  Report Type: Spontaneous
  Country: IE (occurrence: None)
  Receive Date: 20221028
  Receipt Date: 20221028
  Transmission Date: 20230112
  Serious: Yes (Other)
  Sender: FDA-Public Use
  Company Number: 2022A352222

PATIENT
  Age: 53 Year
  Sex: Male

DRUGS (16)
  1. ESOMEPRAZOLE [Suspect]
     Active Substance: ESOMEPRAZOLE
     Indication: Hiatus hernia
     Route: 048
  2. ESOMEPRAZOLE [Suspect]
     Active Substance: ESOMEPRAZOLE
     Indication: Acquired oesophageal web
     Route: 048
  3. ESOMEPRAZOLE [Suspect]
     Active Substance: ESOMEPRAZOLE
     Indication: Hiatus hernia
     Dosage: PRESCRIPTION ONLY PPI
     Route: 048
     Dates: start: 201901
  4. ESOMEPRAZOLE [Suspect]
     Active Substance: ESOMEPRAZOLE
     Indication: Acquired oesophageal web
     Dosage: PRESCRIPTION ONLY PPI
     Route: 048
     Dates: start: 201901
  5. ESOMEPRAZOLE [Suspect]
     Active Substance: ESOMEPRAZOLE
     Indication: Hiatus hernia
     Dosage: TOOK ONE IN THE MORNING AND AGAIN IN THE AFTERNOON
     Route: 048
     Dates: start: 20221001
  6. ESOMEPRAZOLE [Suspect]
     Active Substance: ESOMEPRAZOLE
     Indication: Acquired oesophageal web
     Dosage: TOOK ONE IN THE MORNING AND AGAIN IN THE AFTERNOON
     Route: 048
     Dates: start: 20221001
  7. ESOMEPRAZOLE [Suspect]
     Active Substance: ESOMEPRAZOLE
     Indication: Hiatus hernia
     Dosage: 20MG ONE EVERY SECOND DAY
     Route: 048
     Dates: end: 20220918
  8. ESOMEPRAZOLE [Suspect]
     Active Substance: ESOMEPRAZOLE
     Indication: Acquired oesophageal web
     Dosage: 20MG ONE EVERY SECOND DAY
     Route: 048
     Dates: end: 20220918
  9. CALCIUM CARBONATE\MAGNESIUM CARBONATE [Suspect]
     Active Substance: CALCIUM CARBONATE\MAGNESIUM CARBONATE
     Indication: Hiatus hernia
     Dosage: 680MG/80MG
     Route: 048
     Dates: start: 20220927, end: 20220929
  10. CALCIUM CARBONATE\MAGNESIUM CARBONATE [Suspect]
     Active Substance: CALCIUM CARBONATE\MAGNESIUM CARBONATE
     Indication: Acquired oesophageal web
     Dosage: 680MG/80MG
     Route: 048
     Dates: start: 20220927, end: 20220929
  11. CALCIUM CARBONATE\MAGNESIUM CARBONATE [Suspect]
     Active Substance: CALCIUM CARBONATE\MAGNESIUM CARBONATE
     Indication: Hiatus hernia
     Dosage: STARTED BEFORE JAN/2019
     Route: 048
  12. CALCIUM CARBONATE\MAGNESIUM CARBONATE [Suspect]
     Active Substance: CALCIUM CARBONATE\MAGNESIUM CARBONATE
     Indication: Acquired oesophageal web
     Dosage: STARTED BEFORE JAN/2019
     Route: 048
  13. GAVISCON [Suspect]
     Active Substance: ALUMINUM HYDROXIDE\MAGNESIUM CARBONATE
     Indication: Acquired oesophageal web
     Dosage: STARTED BEFORE JAN/2019, NOT CURRENTLY TAKING
     Route: 065
  14. GAVISCON [Suspect]
     Active Substance: ALUMINUM HYDROXIDE\MAGNESIUM CARBONATE
     Indication: Hiatus hernia
     Dosage: STARTED BEFORE JAN/2019, NOT CURRENTLY TAKING
     Route: 065
  15. PEPCID AC [Concomitant]
     Active Substance: FAMOTIDINE
     Dosage: ANOTHER H2 BLOCKER; WAS GIVEN THE OTHER DAY OVER THE COUNTER; GOT NO RELIEF. SO STOPPED IT
  16. ZOPICLONE [Concomitant]
     Active Substance: ZOPICLONE
     Dosage: YEARS. STOPPED IT A FEW TIMES OVER THE PAST 8 YEARS. WHEN HE STOPPED IT FOR 2 MONTHS, HE STILL HA...

REACTIONS (6)
  - Suicidal ideation [Not Recovered/Not Resolved]
  - Burning mouth syndrome [Not Recovered/Not Resolved]
  - Loss of personal independence in daily activities [Not Recovered/Not Resolved]
  - Feeding disorder [Not Recovered/Not Resolved]
  - Constipation [Not Recovered/Not Resolved]
  - Impaired quality of life [Not Recovered/Not Resolved]

NARRATIVE: CASE EVENT DATE: 20190101
